FAERS Safety Report 16987278 (Version 1)
Quarter: 2019Q4

REPORT INFORMATION
  Report Type: Spontaneous
  Country: US (occurrence: US)
  Receive Date: 20191104
  Receipt Date: 20191104
  Transmission Date: 20200122
  Serious: No
  Sender: FDA-Public Use
  Company Number: NVSC2019US022548

PATIENT
  Age: 75 Year
  Sex: Male

DRUGS (3)
  1. OXYCODONE [Suspect]
     Active Substance: OXYCODONE
     Indication: HEADACHE
     Route: 065
  2. ACETAMINOPHEN (PARACETAMOL) [Suspect]
     Active Substance: ACETAMINOPHEN
     Indication: HEADACHE
     Route: 065
  3. BUTALBITAL [Suspect]
     Active Substance: BUTALBITAL
     Indication: HEADACHE
     Route: 065

REACTIONS (1)
  - Therapy non-responder [Unknown]
